FAERS Safety Report 4519699-4 (Version None)
Quarter: 2004Q4

REPORT INFORMATION
  Report Type: 
  Country: None (occurrence: None)
  Receive Date: 20041206
  Receipt Date: 20040624
  Transmission Date: 20050328
  Serious: Yes (Other)
  Sender: FDA-Public Use
  Company Number: PHNU2004DE02253

PATIENT
  Sex: Male

DRUGS (1)
  1. LAMISIL [Suspect]
     Dosage: UNK, UNK
     Route: 048
     Dates: start: 20040601, end: 20040101

REACTIONS (2)
  - BLOOD GLUCOSE INCREASED [None]
  - LIVER FUNCTION TEST ABNORMAL [None]
